FAERS Safety Report 5981180-3 (Version None)
Quarter: 2008Q4

REPORT INFORMATION
  Report Type: 
  Country: None (occurrence: None)
  Receive Date: 20081205
  Receipt Date: 20081202
  Transmission Date: 20090506
  Serious: Yes (Other)
  Sender: FDA-Public Use
  Company Number: B0543393A

PATIENT
  Age: 58 Year
  Sex: Female

DRUGS (2)
  1. FLUNASE (JAPAN) [Suspect]
     Route: 045
     Dates: start: 20081001, end: 20081004
  2. FLUTIDE [Concomitant]
     Indication: ASTHMA
     Dosage: 200MCG TWICE PER DAY
     Route: 055

REACTIONS (4)
  - ASTHMA [None]
  - COUGH [None]
  - PRODUCTIVE COUGH [None]
  - THROAT IRRITATION [None]
